FAERS Safety Report 7271537-5 (Version None)
Quarter: 2011Q1

REPORT INFORMATION
  Report Type: 
  Country: None (occurrence: None)
  Receive Date: 20110203
  Receipt Date: 20110119
  Transmission Date: 20110831
  Serious: Yes (Other)
  Sender: FDA-Public Use
  Company Number: GB-RANBAXY-2011R1-41220

PATIENT
  Age: 54 Year
  Sex: Female

DRUGS (3)
  1. CITALOPRAM [Concomitant]
     Indication: ANXIETY
     Dosage: 20 MG, ONCE DAILY
     Route: 065
  2. AMOXICILLIN [Suspect]
     Indication: INFECTION
     Dosage: 250 MG, THRICE DAILY
     Route: 065
     Dates: start: 20100909
  3. HRT [Concomitant]
     Indication: HORMONE REPLACEMENT THERAPY
     Dosage: ONCE DAILY
     Route: 065

REACTIONS (3)
  - ANAPHYLACTIC SHOCK [None]
  - RASH PRURITIC [None]
  - DYSPNOEA [None]
